FAERS Safety Report 7778372-X (Version None)
Quarter: 2011Q3

REPORT INFORMATION
  Report Type: 
  Country: None (occurrence: None)
  Receive Date: 20110926
  Receipt Date: 20110922
  Transmission Date: 20111222
  Serious: Yes (Hospitalization)
  Sender: FDA-Public Use
  Company Number: US-GLAXOSMITHKLINE-A0813934A

PATIENT
  Age: 55 Year
  Sex: Male
  Weight: 115 kg

DRUGS (4)
  1. AVANDAMET [Suspect]
     Indication: TYPE 2 DIABETES MELLITUS
     Route: 048
     Dates: start: 20040318, end: 20070801
  2. AVANDIA [Suspect]
     Indication: TYPE 2 DIABETES MELLITUS
     Dosage: 8MG PER DAY
     Route: 048
     Dates: start: 20030101, end: 20060908
  3. AVALIDE [Concomitant]
  4. INSULIN [Concomitant]

REACTIONS (6)
  - MYOCARDIAL INFARCTION [None]
  - CARDIAC ARREST [None]
  - DYSLIPIDAEMIA [None]
  - VENTRICULAR TACHYCARDIA [None]
  - CORONARY ARTERY DISEASE [None]
  - CARDIOMYOPATHY [None]
